FAERS Safety Report 3995099 (Version 5)
Quarter: 2014Q3

REPORT INFORMATION
  Report Type: Spontaneous
  Country: JP (occurrence: JP)
  Receive Date: 20030815
  Receipt Date: 20140923
  Transmission Date: 20150326
  Serious: Yes (Hospitalization)
  Sender: FDA-Public Use
  Company Number: JP-JNJFOC-20030802172

PATIENT
  Age: 44 Year
  Sex: Male
  Weight: 52 kg

DRUGS (5)
  1. PREDONIN [Suspect]
     Active Substance: PREDNISOLONE
     Indication: CROHN^S DISEASE
     Route: 048
     Dates: start: 20030623, end: 20030706
  2. PREDONIN [Suspect]
     Active Substance: PREDNISOLONE
     Indication: CROHN^S DISEASE
     Route: 048
     Dates: start: 20030707, end: 20030724
  3. PREDONIN [Suspect]
     Active Substance: PREDNISOLONE
     Indication: CROHN^S DISEASE
     Route: 048
     Dates: start: 20030614, end: 20030622
  4. REMICADE [Suspect]
     Active Substance: INFLIXIMAB
     Indication: CROHN^S DISEASE
     Route: 042
     Dates: start: 20030714, end: 20030714
  5. PENTASA [Concomitant]
     Active Substance: MESALAMINE
     Route: 048
     Dates: start: 20030614

REACTIONS (1)
  - Tuberculosis gastrointestinal [Unknown]

NARRATIVE: CASE EVENT DATE: 20030729
